FAERS Safety Report 9439887 (Version 1)
Quarter: 2013Q3

REPORT INFORMATION
  Report Type: Spontaneous
  Country: GB (occurrence: GB)
  Receive Date: 20130805
  Receipt Date: 20130805
  Transmission Date: 20140515
  Serious: Yes (Other)
  Sender: FDA-Public Use
  Company Number: GB-JNJFOC-20130708308

PATIENT
  Sex: Female

DRUGS (2)
  1. XEPLION [Suspect]
     Indication: SCHIZOPHRENIA
     Route: 030
     Dates: start: 20120814
  2. XEPLION [Suspect]
     Indication: SCHIZOPHRENIA
     Route: 030
     Dates: start: 20121224

REACTIONS (1)
  - Platelet count decreased [Not Recovered/Not Resolved]
